FAERS Safety Report 25569987 (Version 1)
Quarter: 2025Q3

REPORT INFORMATION
  Report Type: Spontaneous
  Country: US (occurrence: US)
  Receive Date: 20250717
  Receipt Date: 20250717
  Transmission Date: 20251021
  Serious: No
  Sender: ENDO
  Company Number: US-ENDO USA, INC.-2025-000396

PATIENT
  Age: 60 Year
  Sex: Female

DRUGS (2)
  1. CALCITONIN SALMON [Suspect]
     Active Substance: CALCITONIN SALMON
     Indication: Osteoporosis
     Route: 045
     Dates: end: 2025
  2. CALCITONIN SALMON [Suspect]
     Active Substance: CALCITONIN SALMON
     Indication: Osteoporosis
     Route: 045
     Dates: end: 2025

REACTIONS (7)
  - Palpitations [Unknown]
  - Product dose omission issue [Not Recovered/Not Resolved]
  - Poor quality product administered [Unknown]
  - Product substitution issue [Unknown]
  - Product odour abnormal [Unknown]
  - Product label issue [Unknown]
  - Product quality issue [Unknown]

NARRATIVE: CASE EVENT DATE: 20250101
